FAERS Safety Report 7443001-1 (Version None)
Quarter: 2011Q2

REPORT INFORMATION
  Report Type: 
  Country: None (occurrence: None)
  Receive Date: 20110428
  Receipt Date: 20110418
  Transmission Date: 20111010
  Serious: Yes (Hospitalization)
  Sender: FDA-Public Use
  Company Number: US-SANOFI-AVENTIS-2011SA016787

PATIENT
  Age: 73 Year
  Sex: Male
  Weight: 78.7 kg

DRUGS (15)
  1. VYTORIN [Concomitant]
     Dates: start: 20110226
  2. LOVAZA [Concomitant]
     Dates: start: 20110226
  3. NOVOLOG [Concomitant]
     Dosage: 10 UNITS WITH MEALS DOSE:10 UNIT(S)
     Dates: start: 20110226
  4. LEVOTHYROXINE SODIUM [Concomitant]
     Dates: start: 20110226
  5. CENTRUM SILVER [Concomitant]
     Dates: start: 20110226
  6. BACTRIM DS [Concomitant]
     Route: 065
     Dates: start: 20110226
  7. SOLOSTAR [Suspect]
     Dates: end: 20110226
  8. NITRGLYCERIN TRANSDERMAL SYSTEM [Concomitant]
     Route: 065
     Dates: start: 20110226
  9. ASPIRIN [Concomitant]
     Dates: start: 20110226
  10. METOPROLOL [Concomitant]
     Dates: start: 20110226
  11. LANTUS [Suspect]
     Dosage: DOSE:12 UNIT(S)
     Route: 058
     Dates: end: 20110226
  12. QUINAPRIL [Concomitant]
     Dates: start: 20110226
  13. NIASPAN [Concomitant]
     Dates: start: 20110226
  14. TAMSULOSIN [Concomitant]
     Dates: start: 20110226
  15. PLAVIX [Concomitant]
     Dates: start: 20110226

REACTIONS (6)
  - PRURITUS [None]
  - NAUSEA [None]
  - VIRAL INFECTION [None]
  - URINARY TRACT INFECTION [None]
  - HYPERSENSITIVITY [None]
  - DIABETIC KETOACIDOSIS [None]
